FAERS Safety Report 17543945 (Version 1)
Quarter: 2020Q1

REPORT INFORMATION
  Report Type: Spontaneous
  Country: DE (occurrence: DE)
  Receive Date: 20200316
  Receipt Date: 20200316
  Transmission Date: 20200409
  Serious: Yes (Hospitalization)
  Sender: FDA-Public Use
  Company Number: DE-TEVA-2020-DE-1200389

PATIENT
  Age: 51 Year
  Sex: Female

DRUGS (2)
  1. CARBIMAZOL [Suspect]
     Active Substance: CARBIMAZOLE
     Dosage: 20 MG, NK
     Route: 065
  2. PROPRANOLOL [Suspect]
     Active Substance: PROPRANOLOL HYDROCHLORIDE
     Dosage: NK MG, NK
     Route: 065

REACTIONS (4)
  - Anxiety [Unknown]
  - Palpitations [Unknown]
  - Restlessness [Unknown]
  - Bradycardia [Unknown]
